FAERS Safety Report 4516284-5 (Version None)
Quarter: 2004Q4

REPORT INFORMATION
  Report Type: 
  Country: None (occurrence: None)
  Receive Date: 20041005
  Receipt Date: 20031205
  Transmission Date: 20050328
  Serious: Yes (Other)
  Sender: FDA-Public Use
  Company Number: 04-023-0772

PATIENT
  Age: 48 Year
  Sex: Female
  Weight: 99.3377 kg

DRUGS (7)
  1. HALOPERIDOL DECANOATE [Suspect]
     Indication: PSYCHOTIC DISORDER
     Dosage: 200 MG IM Q3 WEEKS
     Route: 030
     Dates: start: 20031112, end: 20031206
  2. COGENTIN [Concomitant]
  3. TEGRETOL [Concomitant]
  4. GLUCOPHAGE [Concomitant]
  5. PEN VR [Concomitant]
  6. ZOLOFT [Concomitant]
  7. LOTENSIN [Concomitant]

REACTIONS (1)
  - INJECTION SITE REACTION [None]
